FAERS Safety Report 6894669-X (Version None)
Quarter: 2010Q3

REPORT INFORMATION
  Report Type: 
  Country: None (occurrence: None)
  Receive Date: 20100727
  Receipt Date: 20100712
  Transmission Date: 20110219
  Serious: Yes (Hospitalization, Other)
  Sender: FDA-Public Use
  Company Number: 008-50794-10040865

PATIENT
  Age: 61 Year
  Sex: Female
  Weight: 69.9 kg

DRUGS (10)
  1. VIDAZA [Suspect]
     Indication: ACUTE MYELOID LEUKAEMIA
     Dosage: 129 MG, INJECTION
     Dates: start: 20100301
  2. VIDAZA [Suspect]
     Indication: ACUTE MYELOID LEUKAEMIA
     Dosage: 129 MG, INJECTION
     Dates: start: 20100412
  3. EVEROLIMUS (EVEROLIMUS) (INJECTION) [Suspect]
     Indication: ACUTE MYELOID LEUKAEMIA
     Dosage: 2.5 MG
     Dates: start: 20100305
  4. EVEROLIMUS (EVEROLIMUS) (INJECTION) [Suspect]
     Indication: ACUTE MYELOID LEUKAEMIA
     Dosage: 2.5 MG
     Dates: start: 20100409
  5. SOTALOL HCL [Concomitant]
  6. PROPAX (OXAZEPAM) [Concomitant]
  7. MAXOLON [Concomitant]
  8. ONDANSETRON [Concomitant]
  9. CIPROXACILLIN [Concomitant]
  10. VORICONAZOLE [Concomitant]

REACTIONS (8)
  - BLOOD BICARBONATE DECREASED [None]
  - FATIGUE [None]
  - FEBRILE NEUTROPENIA [None]
  - HAEMOGLOBIN INCREASED [None]
  - LYMPHOCYTE COUNT INCREASED [None]
  - PLATELET COUNT INCREASED [None]
  - STAPHYLOCOCCAL SEPSIS [None]
  - WHITE BLOOD CELL COUNT DECREASED [None]
